FAERS Safety Report 24544655 (Version 1)
Quarter: 2024Q4

REPORT INFORMATION
  Report Type: Spontaneous
  Country: US (occurrence: None)
  Receive Date: 20241023
  Receipt Date: 20241023
  Transmission Date: 20250114
  Serious: Yes (Other)
  Sender: Public
  Company Number: None

PATIENT
  Age: 70 Year
  Sex: Male
  Weight: 63.05 kg

DRUGS (11)
  1. SEROSTIM [Suspect]
     Active Substance: SOMATROPIN
     Indication: Lipodystrophy acquired
     Route: 058
     Dates: start: 20241016
  2. Nexlizet 180mg/10mg tablet [Concomitant]
  3. AMLODIPINE [Concomitant]
     Active Substance: AMLODIPINE BESYLATE
  4. Vitamin D3 50,000IU capsule [Concomitant]
  5. Metoprolol ER 100mg tablet [Concomitant]
  6. Alprazolam 0.25mg ODT [Concomitant]
  7. Bupropion XL 300mg tablet [Concomitant]
  8. MIRTAZAPINE [Concomitant]
     Active Substance: MIRTAZAPINE
  9. Clopidogrel 75mg tablet [Concomitant]
  10. MultiVitamin Tablet [Concomitant]
  11. Ropinirole 1 mg tablet [Concomitant]

REACTIONS (3)
  - Dizziness [None]
  - Hypoaesthesia [None]
  - Dyspnoea [None]

NARRATIVE: CASE EVENT DATE: 20241016
